FAERS Safety Report 5394139-4 (Version None)
Quarter: 2007Q3

REPORT INFORMATION
  Report Type: 
  Country: None (occurrence: None)
  Receive Date: 20070723
  Receipt Date: 20070711
  Transmission Date: 20080115
  Serious: Yes (Hospitalization)
  Sender: FDA-Public Use
  Company Number: BR-ROCHE-506543

PATIENT
  Sex: Male
  Weight: 59 kg

DRUGS (4)
  1. FUZEON [Suspect]
     Indication: HIV INFECTION
     Dosage: FORM REPORTED AS VIAL.
     Route: 058
     Dates: start: 20061201
  2. FUZEON [Suspect]
     Dosage: THERAPY INTERUPPTED FOR 15 DAYS
     Route: 058
     Dates: start: 20050101, end: 20061201
  3. LAMIVUDINE [Concomitant]
     Indication: HIV INFECTION
     Dosage: THERAPY TEMPORARILY INTERRUPTED IN DECEMBER 2006 (AT THE TIME OF HOSPITALISATION).
     Dates: start: 20050101
  4. KALETRA [Concomitant]
     Indication: HIV INFECTION
     Dosage: THERAPY TEMPORARILY INTERRUPTED IN DECEMBER 2006 (AT THE TIME OF HOSPITALISATION).
     Dates: start: 20050101

REACTIONS (5)
  - INJECTION SITE DISCOLOURATION [None]
  - INJECTION SITE NODULE [None]
  - INJECTION SITE PAIN [None]
  - INJECTION SITE SWELLING [None]
  - OESOPHAGEAL CANDIDIASIS [None]
